FAERS Safety Report 6944540-X (Version None)
Quarter: 2010Q3

REPORT INFORMATION
  Report Type: 
  Country: None (occurrence: None)
  Receive Date: 20100827
  Receipt Date: 20100503
  Transmission Date: 20110219
  Serious: Yes (Life-Threatening)
  Sender: FDA-Public Use
  Company Number: TR-JNJFOC-20100808147

PATIENT
  Sex: Female
  Weight: 65 kg

DRUGS (12)
  1. REMICADE [Suspect]
     Indication: UVEITIS
     Route: 042
  2. REMICADE [Suspect]
     Route: 042
  3. REMICADE [Suspect]
     Indication: BEHCET'S SYNDROME
     Route: 042
  4. REMICADE [Suspect]
     Route: 042
  5. COLCHICINE [Concomitant]
     Indication: UVEITIS
     Route: 048
  6. COLCHICINE [Concomitant]
     Indication: BEHCET'S SYNDROME
     Route: 048
  7. SALAZOPYRIN [Concomitant]
     Indication: UVEITIS
     Route: 048
  8. SALAZOPYRIN [Concomitant]
     Indication: BEHCET'S SYNDROME
     Route: 048
  9. IMURAN [Concomitant]
     Indication: UVEITIS
     Route: 048
  10. IMURAN [Concomitant]
     Indication: BEHCET'S SYNDROME
     Route: 048
  11. SANDIMMUNE [Concomitant]
     Indication: UVEITIS
     Route: 048
  12. SANDIMMUNE [Concomitant]
     Indication: BEHCET'S SYNDROME
     Route: 048

REACTIONS (1)
  - BLINDNESS [None]
